FAERS Safety Report 8548974-1 (Version None)
Quarter: 2012Q3

REPORT INFORMATION
  Report Type: 
  Country: None (occurrence: None)
  Receive Date: 20120730
  Receipt Date: 20120719
  Transmission Date: 20120928
  Serious: Yes (Hospitalization, Other)
  Sender: FDA-Public Use
  Company Number: US-ASTELLAS-2011US003262

PATIENT

DRUGS (2)
  1. PROGRAF [Suspect]
     Indication: MYASTHENIA GRAVIS
     Dosage: 5 MG, UID/QD
     Route: 048
     Dates: start: 20080701, end: 20100601
  2. PROGRAF [Suspect]
     Dosage: 5 MG, UID/QD
     Route: 048

REACTIONS (4)
  - TREATMENT NONCOMPLIANCE [None]
  - HOSPITALISATION [None]
  - GASTROINTESTINAL TUBE INSERTION [None]
  - OFF LABEL USE [None]
